FAERS Safety Report 6677744-4 (Version None)
Quarter: 2010Q2

REPORT INFORMATION
  Report Type: 
  Country: None (occurrence: None)
  Receive Date: 20100412
  Receipt Date: 20100208
  Transmission Date: 20101027
  Serious: No
  Sender: FDA-Public Use
  Company Number: US-ALEXION-A200900807

PATIENT
  Sex: Female

DRUGS (4)
  1. SOLIRIS [Suspect]
     Indication: PAROXYSMAL NOCTURNAL HAEMOGLOBINURIA
     Dosage: 600 MG, QW X4
     Route: 042
     Dates: start: 20090211
  2. SOLIRIS [Suspect]
     Dosage: 900 MG, Q2W
     Route: 042
     Dates: start: 20090301
  3. FOLIC ACID [Concomitant]
     Indication: PAROXYSMAL NOCTURNAL HAEMOGLOBINURIA
     Dosage: 1 MG, BID
     Route: 048
  4. VITAMIN B12                        /00056201/ [Concomitant]
     Dosage: 1000 UG, QD
     Route: 048

REACTIONS (7)
  - CHROMATURIA [None]
  - DYSPHAGIA [None]
  - FEEDING DISORDER [None]
  - FLANK PAIN [None]
  - GROIN PAIN [None]
  - THROAT TIGHTNESS [None]
  - WEIGHT DECREASED [None]
